FAERS Safety Report 16710580 (Version 1)
Quarter: 2019Q3

REPORT INFORMATION
  Report Type: Spontaneous
  Country: US (occurrence: US)
  Receive Date: 20190701
  Receipt Date: 20190701
  Transmission Date: 20191004
  Serious: No
  Sender: FDA-Public Use
  Company Number: None

PATIENT
  Age: 67 Year
  Sex: Female

DRUGS (1)
  1. ORENCIA [Suspect]
     Active Substance: ABATACEPT
     Indication: PSORIASIS
     Dosage: AS DIRECTED
     Route: 058
     Dates: start: 201905

REACTIONS (6)
  - Cough [None]
  - Pulmonary congestion [None]
  - Pyrexia [None]
  - Pain [None]
  - Therapy cessation [None]
  - Chills [None]
